FAERS Safety Report 9862715 (Version 2)
Quarter: 2014Q2

REPORT INFORMATION
  Report Type: Spontaneous
  Country: CA (occurrence: None)
  Receive Date: 20140130
  Receipt Date: 20140630
  Transmission Date: 20141212
  Serious: Yes (Death, Hospitalization)
  Sender: FDA-Public Use
  Company Number: CA-014514

PATIENT
  Age: 85 Year
  Sex: Male

DRUGS (1)
  1. FIRMAGON [Suspect]
     Indication: PROSTATE CANCER
     Dosage: 240 MG 1X SUBCANTEOUS
     Route: 058
     Dates: start: 20130708

REACTIONS (3)
  - Choking [None]
  - Cerebrovascular accident [None]
  - Infection [None]
